FAERS Safety Report 21477668 (Version 1)
Quarter: 2022Q4

REPORT INFORMATION
  Report Type: Other
  Country: EG (occurrence: None)
  Receive Date: 20221019
  Receipt Date: 20221019
  Transmission Date: 20230113
  Serious: No
  Sender: FDA-Public Use
  Company Number: EG-ROCHE-3202163

PATIENT
  Age: 37 Year
  Sex: Male

DRUGS (1)
  1. OCREVUS [Suspect]
     Active Substance: OCRELIZUMAB
     Indication: Multiple sclerosis
     Route: 042
     Dates: start: 20201028

REACTIONS (6)
  - Withdrawal syndrome [Not Recovered/Not Resolved]
  - Rhinorrhoea [Unknown]
  - Influenza [Unknown]
  - Limb discomfort [Unknown]
  - Dizziness [Unknown]
  - Strabismus [Unknown]

NARRATIVE: CASE EVENT DATE: 20220901
